FAERS Safety Report 17892474 (Version 1)
Quarter: 2020Q2

REPORT INFORMATION
  Report Type: Report from Study
  Country: None (occurrence: IT)
  Receive Date: 20200612
  Receipt Date: 20200612
  Transmission Date: 20200714
  Serious: Yes (Other)
  Sender: FDA-Public Use
  Company Number: IT-ABBVIE-20K-083-3441708-00

PATIENT
  Age: 77 Year
  Sex: Male

DRUGS (1)
  1. DUODOPA [Suspect]
     Active Substance: CARBIDOPA\LEVODOPA
     Indication: PARKINSON^S DISEASE
     Dosage: MD: 7+3 ?CR: 3,2 (14H)?ED: 3
     Route: 050
     Dates: start: 20161026

REACTIONS (1)
  - Hypertensive cardiomyopathy [Unknown]

NARRATIVE: CASE EVENT DATE: 202006
